FAERS Safety Report 16875312 (Version 1)
Quarter: 2019Q4

REPORT INFORMATION
  Report Type: Report from Study
  Country: None (occurrence: US)
  Receive Date: 20191001
  Receipt Date: 20191001
  Transmission Date: 20200122
  Serious: Yes (Other)
  Sender: FDA-Public Use
  Company Number: US-ABBVIE-19K-163-2938330-00

PATIENT
  Sex: Female

DRUGS (1)
  1. SYNTHROID [Suspect]
     Active Substance: LEVOTHYROXINE SODIUM
     Indication: PRODUCT USED FOR UNKNOWN INDICATION
     Route: 048

REACTIONS (8)
  - Nasal congestion [Unknown]
  - Anaphylactic shock [Unknown]
  - Lacrimation increased [Unknown]
  - Dyspnoea [Unknown]
  - Dysphonia [Unknown]
  - Thyroid mass [Unknown]
  - Respiratory tract congestion [Unknown]
  - Drug hypersensitivity [Unknown]
